FAERS Safety Report 8755904 (Version 2)
Quarter: 2013Q4

REPORT INFORMATION
  Report Type: Spontaneous
  Country: CA (occurrence: CA)
  Receive Date: 20120827
  Receipt Date: 20131106
  Transmission Date: 20140711
  Serious: Yes (Death)
  Sender: FDA-Public Use
  Company Number: CA-009507513-1207CAN011040

PATIENT
  Sex: Female

DRUGS (1)
  1. TEMODAL [Suspect]
     Indication: METASTATIC MALIGNANT MELANOMA
     Dosage: 250 MG, UNK
     Route: 048
     Dates: start: 201201, end: 201207

REACTIONS (1)
  - Disease progression [Fatal]
